FAERS Safety Report 5005701-2 (Version None)
Quarter: 2006Q2

REPORT INFORMATION
  Report Type: 
  Country: None (occurrence: None)
  Receive Date: 20060515
  Receipt Date: 20060504
  Transmission Date: 20061013
  Serious: Yes (Other)
  Sender: FDA-Public Use
  Company Number: ENT 2006-0062 (0)

PATIENT
  Age: 78 Year
  Sex: Female

DRUGS (4)
  1. COMTAN [Suspect]
     Indication: PARKINSON'S DISEASE
     Dosage: 200 MG
     Route: 048
     Dates: start: 20050221, end: 20050221
  2. MADOPAR [Concomitant]
  3. CAVINTON [Concomitant]
  4. CORDARONE [Concomitant]

REACTIONS (3)
  - EYELID OEDEMA [None]
  - FACE OEDEMA [None]
  - URTICARIA [None]
